FAERS Safety Report 6083350-5 (Version None)
Quarter: 2009Q1

REPORT INFORMATION
  Report Type: 
  Country: None (occurrence: None)
  Receive Date: 20090219
  Receipt Date: 20090212
  Transmission Date: 20090719
  Serious: Yes (Hospitalization)
  Sender: FDA-Public Use
  Company Number: DE-BAXTER-2009BH002458

PATIENT
  Age: 58 Year
  Sex: Male

DRUGS (2)
  1. FORANE [Suspect]
     Indication: ANAESTHESIA
     Route: 065
     Dates: start: 20081203, end: 20081203
  2. MIDAZOLAM HCL [Concomitant]

REACTIONS (3)
  - COMA [None]
  - RENAL FAILURE [None]
  - RHABDOMYOLYSIS [None]
